FAERS Safety Report 6347545-5 (Version None)
Quarter: 2009Q3

REPORT INFORMATION
  Report Type: 
  Country: None (occurrence: None)
  Receive Date: 20090908
  Receipt Date: 20090908
  Transmission Date: 20100115
  Serious: No
  Sender: FDA-Public Use
  Company Number: None

PATIENT
  Age: 48 Year
  Sex: Male
  Weight: 108.8633 kg

DRUGS (1)
  1. ADVAIR HFA [Suspect]
     Indication: INFLUENZA
     Dosage: AS DIRECTED
     Dates: start: 20061001, end: 20061101

REACTIONS (1)
  - IRIS DISORDER [None]
